FAERS Safety Report 9970115 (Version 2)
Quarter: 2014Q1

REPORT INFORMATION
  Report Type: Spontaneous
  Country: JP (occurrence: JP)
  Receive Date: 20140306
  Receipt Date: 20140321
  Transmission Date: 20141002
  Serious: Yes (Hospitalization)
  Sender: FDA-Public Use
  Company Number: JP-OTSUKA-JP-2014-12141

PATIENT
  Age: 70 Year
  Sex: Female

DRUGS (2)
  1. SAMSCA [Suspect]
     Indication: CARDIAC FAILURE
     Dosage: UNK
     Route: 050
     Dates: start: 20140227, end: 20140305
  2. HANP [Concomitant]
     Dosage: UNK
     Route: 041

REACTIONS (1)
  - Depressed level of consciousness [Not Recovered/Not Resolved]
